FAERS Safety Report 10489262 (Version 2)
Quarter: 2015Q1

REPORT INFORMATION
  Report Type: Spontaneous
  Country: GB (occurrence: GB)
  Receive Date: 20141002
  Receipt Date: 20150112
  Transmission Date: 20150720
  Serious: Yes (Other)
  Sender: FDA-Public Use
  Company Number: GB-TEVA-511113ISR

PATIENT
  Age: 38 Year
  Sex: Male
  Weight: 136 kg

DRUGS (18)
  1. CETIRIZINE [Concomitant]
     Active Substance: CETIRIZINE HYDROCHLORIDE
  2. FENTANYL. [Concomitant]
     Active Substance: FENTANYL
  3. FLIXONASE AQUEOUS [Concomitant]
  4. LYMECYCLINE [Concomitant]
     Active Substance: LYMECYCLINE
  5. PROPRANOLOL HYDROCHLORIDE. [Concomitant]
     Active Substance: PROPRANOLOL HYDROCHLORIDE
  6. SEVREDOL [Concomitant]
     Active Substance: MORPHINE
  7. CREON [Concomitant]
     Active Substance: PANCRELIPASE AMYLASE\PANCRELIPASE LIPASE\PANCRELIPASE PROTEASE
  8. FORCEVAL [Concomitant]
     Active Substance: FOLIC ACID\IRON\MINERALS\VITAMINS
  9. PARACETAMOL [Concomitant]
     Active Substance: ACETAMINOPHEN
  10. SEROXAT [Concomitant]
     Active Substance: PAROXETINE HYDROCHLORIDE
  11. TOLTERODINE [Concomitant]
     Active Substance: TOLTERODINE
  12. TRIMETHOPRIM. [Concomitant]
     Active Substance: TRIMETHOPRIM
  13. MORPHINE SULPHATE [Concomitant]
     Active Substance: MORPHINE SULFATE
  14. NEBIDO [Concomitant]
     Active Substance: TESTOSTERONE UNDECANOATE
     Indication: HYPOGONADISM
  15. NITROFURANTOIN. [Suspect]
     Active Substance: NITROFURANTOIN
     Indication: URINARY TRACT INFECTION
     Dosage: 4 DOSAGE FORMS DAILY; 4 CAPSULES PER DAY
     Route: 048
     Dates: start: 20140904, end: 20140914
  16. DIFFLAM [Concomitant]
     Active Substance: BENZYDAMINE HYDROCHLORIDE
  17. GABAPENTIN. [Concomitant]
     Active Substance: GABAPENTIN
  18. LORAZEPAM. [Concomitant]
     Active Substance: LORAZEPAM

REACTIONS (9)
  - Dyspnoea [Recovering/Resolving]
  - Pain in extremity [Unknown]
  - Cough [Recovering/Resolving]
  - Sensory disturbance [Unknown]
  - Hypoaesthesia [Unknown]
  - Suffocation feeling [Recovering/Resolving]
  - Neuropathy peripheral [Recovering/Resolving]
  - Respiratory tract inflammation [Recovering/Resolving]
  - Bronchospasm [Recovering/Resolving]

NARRATIVE: CASE EVENT DATE: 20140909
